FAERS Safety Report 17174884 (Version 1)
Quarter: 2019Q4

REPORT INFORMATION
  Report Type: Other
  Country: CA (occurrence: CA)
  Receive Date: 20191219
  Receipt Date: 20191219
  Transmission Date: 20200122
  Serious: Yes (Other)
  Sender: FDA-Public Use
  Company Number: CA-BECTON DICKINSON-2019BDN00429

PATIENT

DRUGS (21)
  1. ETANERCEPT [Suspect]
     Active Substance: ETANERCEPT
  2. ACTEMRA [Suspect]
     Active Substance: TOCILIZUMAB
  3. PANTOPRAZOLE [Concomitant]
     Active Substance: PANTOPRAZOLE
  4. METHOTREXATE. [Suspect]
     Active Substance: METHOTREXATE
  5. DESOGESTREL/ETHINYL ESTRADIOL [Concomitant]
     Active Substance: DESOGESTREL\ETHINYL ESTRADIOL
  6. PREDNISONE. [Concomitant]
     Active Substance: PREDNISONE
  7. VITAMIN C [Concomitant]
     Active Substance: ASCORBIC ACID
  8. ZOPICLONE [Concomitant]
     Active Substance: ZOPICLONE
  9. CIMZIA [Suspect]
     Active Substance: CERTOLIZUMAB PEGOL
     Dosage: 4000 MG
     Route: 058
  10. CETIRIZINE HYDROCHLORIDE. [Concomitant]
     Active Substance: CETIRIZINE HYDROCHLORIDE
  11. HYDROXYCHLOROQUINE SULFATE. [Concomitant]
     Active Substance: HYDROXYCHLOROQUINE SULFATE
  12. ERGOCALCIFEROL. [Concomitant]
     Active Substance: ERGOCALCIFEROL
  13. SALBUTAMOL [Concomitant]
     Active Substance: ALBUTEROL
  14. ACETAMINOPHEN. [Suspect]
     Active Substance: ACETAMINOPHEN
  15. LEFLUNOMIDE. [Suspect]
     Active Substance: LEFLUNOMIDE
     Dosage: UNK
  16. ORENCIA [Suspect]
     Active Substance: ABATACEPT
     Route: 042
  17. CHLORHEXIDINE [Suspect]
     Active Substance: CHLORHEXIDINE
  18. LEFLUNOMIDE. [Suspect]
     Active Substance: LEFLUNOMIDE
     Dosage: UNK
     Route: 048
  19. OXYCODONE [Suspect]
     Active Substance: OXYCODONE
  20. SIMPONI [Suspect]
     Active Substance: GOLIMUMAB
     Route: 058
  21. IBUPROFEN. [Concomitant]
     Active Substance: IBUPROFEN

REACTIONS (21)
  - Asthenia [Unknown]
  - Insomnia [Unknown]
  - Pruritus [Unknown]
  - Respiratory disorder [Unknown]
  - Urticaria [Unknown]
  - Joint swelling [Unknown]
  - Abdominal pain [Unknown]
  - Diarrhoea [Unknown]
  - Night sweats [Unknown]
  - Pain [Unknown]
  - Back pain [Unknown]
  - Peripheral swelling [Unknown]
  - Vomiting [Unknown]
  - Lower respiratory tract infection [Unknown]
  - Body temperature increased [Unknown]
  - Ear pain [Unknown]
  - Muscle spasticity [Unknown]
  - Rash [Unknown]
  - Headache [Unknown]
  - Intentional product use issue [Unknown]
  - Sinusitis [Unknown]
